FAERS Safety Report 4556013-2 (Version None)
Quarter: 2005Q1

REPORT INFORMATION
  Report Type: 
  Country: None (occurrence: None)
  Receive Date: 20050110
  Receipt Date: 20041018
  Transmission Date: 20050727
  Serious: Yes (Other)
  Sender: FDA-Public Use
  Company Number: A03200403494

PATIENT
  Sex: Female

DRUGS (2)
  1. DEMEROL [Suspect]
     Indication: ABDOMINAL PAIN
     Dosage: UNIT DOSE
  2. KYTRIL [Suspect]
     Indication: ABDOMINAL PAIN

REACTIONS (1)
  - CONVULSION [None]
